FAERS Safety Report 6983950-1 (Version None)
Quarter: 2010Q3

REPORT INFORMATION
  Report Type: 
  Country: None (occurrence: None)
  Receive Date: 20100914
  Receipt Date: 20090330
  Transmission Date: 20110219
  Serious: No
  Sender: FDA-Public Use
  Company Number: US-WYE-H08760509

PATIENT
  Age: 36 Year
  Sex: Male
  Weight: 65.83 kg

DRUGS (1)
  1. ADVIL LIQUI-GELS [Suspect]
     Indication: HEADACHE
     Dosage: 2 TABLETS AS NEEDED
     Route: 048

REACTIONS (1)
  - EYE SWELLING [None]
